FAERS Safety Report 8001267-3 (Version None)
Quarter: 2011Q4

REPORT INFORMATION
  Report Type: 
  Country: None (occurrence: None)
  Receive Date: 20111219
  Receipt Date: 20111206
  Transmission Date: 20120403
  Serious: Yes (Other)
  Sender: FDA-Public Use
  Company Number: 2011SP057308

PATIENT
  Age: 58 Year
  Sex: Female

DRUGS (3)
  1. RIBAVIRIN [Suspect]
     Indication: HEPATITIS C
     Dosage: 1200 MG;QD 600 MG;QD
     Dates: start: 20110919
  2. TELAPREVIR [Suspect]
     Indication: HEPATITIS C
     Dates: start: 20110919
  3. PEG-INTRON [Suspect]
     Indication: HEPATITIS C
     Dates: start: 20110919

REACTIONS (10)
  - DIARRHOEA [None]
  - FATIGUE [None]
  - HYPOTENSION [None]
  - DYSPNOEA [None]
  - NAUSEA [None]
  - ABDOMINAL PAIN UPPER [None]
  - DECREASED APPETITE [None]
  - ANAEMIA [None]
  - DYSGEUSIA [None]
  - WEIGHT DECREASED [None]
